FAERS Safety Report 12888119 (Version 1)
Quarter: 2016Q4

REPORT INFORMATION
  Report Type: Spontaneous
  Country: US (occurrence: US)
  Receive Date: 20161027
  Receipt Date: 20161027
  Transmission Date: 20170207
  Serious: No
  Sender: FDA-Public Use
  Company Number: US-AUROBINDO-AUR-APU-2016-10344

PATIENT
  Age: 72 Year
  Sex: Male
  Weight: 104.31 kg

DRUGS (1)
  1. FLECAINIDE ACETATE TABLETS USP 100MG [Suspect]
     Active Substance: FLECAINIDE ACETATE
     Indication: ATRIAL FIBRILLATION
     Dosage: 2 DF, DAILY (ONE IN THE MORNING AND ONE AT NIGHT)
     Route: 065

REACTIONS (1)
  - Rash [Not Recovered/Not Resolved]
